FAERS Safety Report 16540856 (Version 1)
Quarter: 2019Q3

REPORT INFORMATION
  Report Type: Spontaneous
  Country: US (occurrence: US)
  Receive Date: 20190707
  Receipt Date: 20190707
  Transmission Date: 20191004
  Serious: No
  Sender: FDA-Public Use
  Company Number: None

PATIENT
  Age: 30 Year
  Sex: Female
  Weight: 58.95 kg

DRUGS (5)
  1. VENLAFAXINE ER 150MG CAPSULE [Suspect]
     Active Substance: VENLAFAXINE HYDROCHLORIDE
     Indication: DEPRESSION
     Dosage: ?          QUANTITY:30 CAPSULE(S);?
     Route: 048
     Dates: start: 20190502, end: 20190604
  2. VENLAFAXINE ER 150MG CAPSULE [Suspect]
     Active Substance: VENLAFAXINE HYDROCHLORIDE
     Indication: ANXIETY
     Dosage: ?          QUANTITY:30 CAPSULE(S);?
     Route: 048
     Dates: start: 20190502, end: 20190604
  3. YAZ GENERIC BIRTH CONTROL [Concomitant]
  4. CENTRUM VITAMINS LIQUID [Concomitant]
     Active Substance: VITAMINS
  5. MELATONIN [Concomitant]
     Active Substance: MELATONIN

REACTIONS (4)
  - Product substitution issue [None]
  - Therapeutic product effect incomplete [None]
  - Product solubility abnormal [None]
  - Fatigue [None]

NARRATIVE: CASE EVENT DATE: 20190612
